FAERS Safety Report 24548047 (Version 1)
Quarter: 2024Q4

REPORT INFORMATION
  Report Type: Spontaneous
  Country: US (occurrence: US)
  Receive Date: 20241025
  Receipt Date: 20241025
  Transmission Date: 20250114
  Serious: No
  Sender: BRISTOL-MYERS SQUIBB COMPANY
  Company Number: US-BRISTOL-MYERS SQUIBB COMPANY-2024-167923

PATIENT
  Age: 83 Year
  Sex: Male

DRUGS (2)
  1. ELIQUIS [Suspect]
     Active Substance: APIXABAN
     Indication: Product used for unknown indication
     Route: 048
  2. VYNDAMAX [Concomitant]
     Active Substance: TAFAMIDIS
     Indication: Amyloidosis
     Route: 048
     Dates: start: 20241018

REACTIONS (1)
  - Off label use [Unknown]
